FAERS Safety Report 6555897-6 (Version None)
Quarter: 2010Q1

REPORT INFORMATION
  Report Type: 
  Country: None (occurrence: None)
  Receive Date: 20100128
  Receipt Date: 20100121
  Transmission Date: 20100710
  Serious: Yes (Death, Disabling, Other)
  Sender: FDA-Public Use
  Company Number: JP-ROCHE-669392

PATIENT
  Sex: Female
  Weight: 69 kg

DRUGS (10)
  1. ACTEMRA [Suspect]
     Indication: RHEUMATOID ARTHRITIS
     Route: 041
     Dates: start: 20090416, end: 20090916
  2. OMEPRAL [Concomitant]
     Dosage: DOSE FORM: ENTERIC
     Route: 048
  3. LIPITOR [Concomitant]
     Dosage: DRUG: LIPITOR(ATORVASTATIN CALCIUM)
     Route: 048
  4. MOBIC [Concomitant]
     Route: 048
  5. ONEALFA [Concomitant]
     Route: 048
  6. FUROSEMID [Concomitant]
     Dosage: DRUG: FUROSEMIDE(FUROSEMIDE)
     Route: 048
  7. DIOVAN [Concomitant]
     Route: 048
  8. NORVASC [Concomitant]
     Dosage: DRUG: NORVASC(AMLODIPINE BESILATE)
     Route: 048
  9. CARDENALIN [Concomitant]
     Dosage: DRUG: CARDENALIN(DOXAZOSIN MESILATE)
     Route: 048
  10. ALENDRONATE SODIUM [Concomitant]
     Dosage: DRUG: FOSAMAC 35MG(ALENDRONATE SODIUM HYDRATE)
     Route: 048

REACTIONS (3)
  - INTERSTITIAL LUNG DISEASE [None]
  - PNEUMONIA [None]
  - PULMONARY HYPERTENSION [None]
